FAERS Safety Report 8073062-0 (Version None)
Quarter: 2012Q1

REPORT INFORMATION
  Report Type: 
  Country: None (occurrence: None)
  Receive Date: 20120126
  Receipt Date: 20120118
  Transmission Date: 20120608
  Serious: Yes (Hospitalization, Other)
  Sender: FDA-Public Use
  Company Number: AR-BRISTOL-MYERS SQUIBB COMPANY-15918550

PATIENT
  Age: 67 Year
  Sex: Male

DRUGS (1)
  1. ABATACEPT [Suspect]
     Indication: RHEUMATOID ARTHRITIS
     Route: 042
     Dates: start: 20100902

REACTIONS (4)
  - CHOLECYSTITIS ACUTE [None]
  - BILIARY COLIC [None]
  - CHOLELITHIASIS [None]
  - PNEUMONIA [None]
